FAERS Safety Report 4774864-6 (Version None)
Quarter: 2005Q3

REPORT INFORMATION
  Report Type: 
  Country: None (occurrence: None)
  Receive Date: 20050919
  Receipt Date: 20050909
  Transmission Date: 20060218
  Serious: Yes (Other)
  Sender: FDA-Public Use
  Company Number: 2005126442

PATIENT
  Age: 68 Year
  Sex: Male
  Weight: 81.6475 kg

DRUGS (4)
  1. LIPITOR [Suspect]
     Indication: BLOOD CHOLESTEROL
     Dosage: 20 MG (1 IN 1 D)
  2. TOPROL (METOPROLOL) [Concomitant]
  3. HYDROCHLOROTHIAZIDE [Concomitant]
  4. COATED ASPIRIN (ACETYLSALICYLIC ACID) [Concomitant]

REACTIONS (2)
  - HYPERTONIC BLADDER [None]
  - PROSTATE CANCER [None]
